FAERS Safety Report 11993565 (Version 2)
Quarter: 2016Q2

REPORT INFORMATION
  Report Type: Spontaneous
  Country: US (occurrence: US)
  Receive Date: 20160203
  Receipt Date: 20160617
  Transmission Date: 20160815
  Serious: No
  Sender: FDA-Public Use
  Company Number: US-PFIZER INC-2016007156

PATIENT
  Sex: Female

DRUGS (1)
  1. EFFEXOR XR [Suspect]
     Active Substance: VENLAFAXINE HYDROCHLORIDE
     Dosage: UNK
     Dates: start: 2001

REACTIONS (3)
  - Attention deficit/hyperactivity disorder [Unknown]
  - Memory impairment [Unknown]
  - Bradyphrenia [Unknown]

NARRATIVE: CASE EVENT DATE: 2011
